FAERS Safety Report 16310527 (Version 1)
Quarter: 2019Q2

REPORT INFORMATION
  Report Type: Spontaneous
  Country: GB (occurrence: GB)
  Receive Date: 20190514
  Receipt Date: 20190514
  Transmission Date: 20190711
  Serious: Yes (Other)
  Sender: FDA-Public Use
  Company Number: GB-MYLANLABS-2019M1044833

PATIENT

DRUGS (2)
  1. EMTRICITABINE/TENOFOVIR DISOPROXIL FUMARATE [Suspect]
     Active Substance: EMTRICITABINE\TENOFOVIR DISOPROXIL FUMARATE
     Indication: HIV INFECTION
     Dosage: UNK UNK, QD (300/200MG QD)
     Route: 048
  2. DOLUTEGRAVIR [Concomitant]
     Active Substance: DOLUTEGRAVIR
     Dosage: UNK

REACTIONS (7)
  - Psychotic disorder [Unknown]
  - Cholelithiasis [Unknown]
  - Hepatotoxicity [Unknown]
  - Suicidal ideation [Unknown]
  - Suicide attempt [Unknown]
  - Substance-induced psychotic disorder [Unknown]
  - Rhabdomyolysis [Unknown]
